FAERS Safety Report 5656010-X (Version None)
Quarter: 2008Q1

REPORT INFORMATION
  Report Type: 
  Country: None (occurrence: None)
  Receive Date: 20080307
  Receipt Date: 20080225
  Transmission Date: 20080703
  Serious: Yes (Other)
  Sender: FDA-Public Use
  Company Number: FR-PFIZER INC-2008018636

PATIENT
  Sex: Female

DRUGS (3)
  1. LYRICA [Suspect]
     Indication: NEURALGIA
     Dosage: DAILY DOSE:50MG-FREQ:EVERYDAY
     Dates: start: 20080124, end: 20080201
  2. NOCTAMID [Suspect]
     Dates: start: 20080124, end: 20080201
  3. IMOVANE [Concomitant]

REACTIONS (5)
  - ABNORMAL BEHAVIOUR [None]
  - AMNESIA [None]
  - HALLUCINATION [None]
  - NAUSEA [None]
  - VOMITING [None]
